FAERS Safety Report 17682428 (Version 1)
Quarter: 2020Q2

REPORT INFORMATION
  Report Type: Spontaneous
  Country: GB (occurrence: GB)
  Receive Date: 20200418
  Receipt Date: 20200418
  Transmission Date: 20200714
  Serious: Yes (Other)
  Sender: FDA-Public Use
  Company Number: GB-AUROBINDO-AUR-APL-2020-018562

PATIENT
  Age: 58 Year
  Sex: Female
  Weight: 61.5 kg

DRUGS (1)
  1. TERBINAFINE. [Suspect]
     Active Substance: TERBINAFINE
     Indication: FUNGAL INFECTION
     Dosage: 1 DOSAGE FORM, ONCE A DAY
     Route: 048
     Dates: start: 20200214, end: 20200312

REACTIONS (9)
  - Limb discomfort [Unknown]
  - Myalgia [Not Recovered/Not Resolved]
  - Swelling face [Recovered/Resolved]
  - Fatigue [Not Recovered/Not Resolved]
  - Flushing [Unknown]
  - Hypoaesthesia [Recovered/Resolved]
  - Insomnia [Not Recovered/Not Resolved]
  - Musculoskeletal pain [Not Recovered/Not Resolved]
  - Arthralgia [Not Recovered/Not Resolved]

NARRATIVE: CASE EVENT DATE: 20200315
